FAERS Safety Report 12535473 (Version 4)
Quarter: 2016Q3

REPORT INFORMATION
  Report Type: Spontaneous
  Country: TR (occurrence: TR)
  Receive Date: 20160707
  Receipt Date: 20160726
  Transmission Date: 20161109
  Serious: Yes (Death)
  Sender: FDA-Public Use
  Company Number: PHHY2016TR092498

PATIENT
  Age: 81 Year
  Sex: Male

DRUGS (4)
  1. RIVASTIGMINE. [Suspect]
     Active Substance: RIVASTIGMINE
     Indication: DEMENTIA WITH LEWY BODIES
     Dosage: 5-10 CM2/DAY
     Route: 062
  2. QUETIAPINE. [Suspect]
     Active Substance: QUETIAPINE
     Indication: AGITATION
     Dosage: 150 MG (50-150 MG), QD
     Route: 065
  3. MELATONIN [Suspect]
     Active Substance: MELATONIN
     Indication: DEMENTIA WITH LEWY BODIES
     Dosage: 3 MG, QD
     Route: 065
  4. ESCITALOPRAM [Suspect]
     Active Substance: ESCITALOPRAM OXALATE
     Indication: DEMENTIA WITH LEWY BODIES
     Dosage: 15 MG (10-15 MG), QD
     Route: 048

REACTIONS (3)
  - Lung infection [Fatal]
  - Product use issue [Unknown]
  - Agitation [Unknown]
